FAERS Safety Report 15779497 (Version 3)
Quarter: 2019Q2

REPORT INFORMATION
  Report Type: Spontaneous
  Country: US (occurrence: US)
  Receive Date: 20190101
  Receipt Date: 20190411
  Transmission Date: 20190711
  Serious: No
  Sender: FDA-Public Use
  Company Number: US-ASTRAZENECA-2018SF71061

PATIENT
  Age: 1034 Month
  Sex: Male
  Weight: 76.2 kg

DRUGS (8)
  1. ATORVASTAIN [Concomitant]
     Active Substance: ATORVASTATIN
     Route: 048
  2. ISOSORBIDE. [Concomitant]
     Active Substance: ISOSORBIDE
     Route: 048
  3. BABY ASPIRIN [Concomitant]
     Active Substance: ASPIRIN
     Route: 048
  4. NEXIUM [Suspect]
     Active Substance: ESOMEPRAZOLE MAGNESIUM
     Indication: DYSPEPSIA
     Route: 048
  5. TUDORZA PRESSAIR [Suspect]
     Active Substance: ACLIDINIUM BROMIDE
     Indication: ASTHMA
     Route: 055
  6. MONTELUKAST [Concomitant]
     Active Substance: MONTELUKAST SODIUM
     Route: 055
  7. LIDODERM [Concomitant]
     Active Substance: LIDOCAINE
     Route: 061
  8. HYDROCODONE [Concomitant]
     Active Substance: HYDROCODONE
     Dosage: AS REQUIRED
     Route: 048

REACTIONS (18)
  - Eye disorder [Unknown]
  - Herpes zoster [Unknown]
  - Dyspnoea [Unknown]
  - Bronchitis [Unknown]
  - Fatigue [Unknown]
  - Intentional product misuse [Unknown]
  - Memory impairment [Unknown]
  - Nerve injury [Unknown]
  - Nasopharyngitis [Unknown]
  - Chronic obstructive pulmonary disease [Unknown]
  - Oxygen consumption [Unknown]
  - Cough [Unknown]
  - Off label use [Unknown]
  - Pain [Unknown]
  - Malaise [Unknown]
  - Device malfunction [Unknown]
  - Blister [Unknown]
  - Product use in unapproved indication [Unknown]

NARRATIVE: CASE EVENT DATE: 201807
